FAERS Safety Report 5984127-9 (Version None)
Quarter: 2008Q4

REPORT INFORMATION
  Report Type: 
  Country: None (occurrence: None)
  Receive Date: 20081208
  Receipt Date: 20080819
  Transmission Date: 20090506
  Serious: Yes (Other)
  Sender: FDA-Public Use
  Company Number: US-AMGEN-QUU302789

PATIENT
  Sex: Female

DRUGS (2)
  1. ENBREL [Suspect]
     Indication: RHEUMATOID ARTHRITIS
     Route: 058
     Dates: start: 20070109
  2. METHOTREXATE [Concomitant]
     Route: 048
     Dates: start: 19940101

REACTIONS (2)
  - INJECTION SITE PAIN [None]
  - NEOPLASM MALIGNANT [None]
